FAERS Safety Report 6826481-1 (Version None)
Quarter: 2010Q3

REPORT INFORMATION
  Report Type: 
  Country: None (occurrence: None)
  Receive Date: 20100709
  Receipt Date: 20100628
  Transmission Date: 20110219
  Serious: Yes (Death, Other)
  Sender: FDA-Public Use
  Company Number: US-WATSON-2010-08576

PATIENT
  Sex: Male

DRUGS (4)
  1. FENTANYL-100 [Suspect]
     Indication: OSTEOPOROSIS
     Dosage: 1 PATCH, QOD
     Route: 062
     Dates: start: 20090901, end: 20100513
  2. FENTANYL-25 [Suspect]
     Indication: OSTEOPOROSIS
     Dosage: 1 PATCH QOD
     Route: 062
     Dates: start: 20091101, end: 20100513
  3. LEXAPRO [Concomitant]
     Indication: DEPRESSION
     Dosage: UNK
     Dates: start: 20091101
  4. LAMICTAL [Concomitant]
     Indication: DEPRESSION
     Dosage: UNK
     Dates: start: 20091101

REACTIONS (5)
  - COMPLETED SUICIDE [None]
  - DEPRESSION [None]
  - DRUG DEPENDENCE [None]
  - INTENTIONAL DRUG MISUSE [None]
  - WITHDRAWAL SYNDROME [None]
